FAERS Safety Report 9183606 (Version 2)
Quarter: 2013Q2

REPORT INFORMATION
  Report Type: Spontaneous
  Country: US (occurrence: US)
  Receive Date: 20130322
  Receipt Date: 20130515
  Transmission Date: 20140414
  Serious: No
  Sender: FDA-Public Use
  Company Number: US-VERTEX PHARMACEUTICALS INC.-2013-003954

PATIENT
  Age: 39 Year
  Sex: Male
  Weight: 163 kg

DRUGS (8)
  1. INCIVEK [Suspect]
     Indication: HEPATITIS C
     Dosage: 750 MG, TID
     Route: 048
     Dates: start: 20130211
  2. RIBAVIRIN [Suspect]
     Indication: HEPATITIS C
     Dosage: 600 MG AM, 800 MG PM, QD
     Dates: start: 20130211
  3. PEGASYS [Suspect]
     Indication: HEPATITIS C
     Dosage: 180 ?G, QW
     Route: 058
     Dates: start: 20130211
  4. VENTOLIN HFA [Concomitant]
  5. DICLOFENAC SODIUM [Concomitant]
     Dosage: 1 DF, TID
     Route: 048
  6. NYSTATIN [Concomitant]
     Dosage: 1000000 UNIT/ ML, UNK
  7. HYDROXYZINE HCL [Concomitant]
     Dosage: 25 MG, UNK
  8. AMBIEN [Concomitant]
     Dosage: 5 MG, UNK

REACTIONS (5)
  - Inappropriate schedule of drug administration [Recovered/Resolved]
  - Dyspepsia [Not Recovered/Not Resolved]
  - Rash [Not Recovered/Not Resolved]
  - Pruritus generalised [Not Recovered/Not Resolved]
  - Anorectal discomfort [Not Recovered/Not Resolved]
